FAERS Safety Report 5879486-1 (Version None)
Quarter: 2008Q3

REPORT INFORMATION
  Report Type: 
  Country: None (occurrence: None)
  Receive Date: 20080912
  Receipt Date: 20080829
  Transmission Date: 20090109
  Serious: Yes (Life-Threatening, Hospitalization, Other)
  Sender: FDA-Public Use
  Company Number: JP-ELI_LILLY_AND_COMPANY-JP200808001198

PATIENT
  Sex: Female
  Weight: 63.8 kg

DRUGS (18)
  1. GEMZAR [Suspect]
     Indication: PANCREATIC CARCINOMA
     Dosage: 1300 MG, OTHER
     Route: 042
     Dates: start: 20080725, end: 20080725
  2. DIOVAN [Concomitant]
     Dosage: 160 MG, DAILY (1/D)
     Route: 048
     Dates: start: 20080715, end: 20080801
  3. TANATRIL [Concomitant]
     Dosage: 10 MG, DAILY (1/D)
     Route: 048
     Dates: start: 20080715, end: 20080801
  4. TANATRIL [Concomitant]
     Dosage: 5 MG, UNK
     Route: 048
     Dates: start: 20080801
  5. LASIX [Concomitant]
     Dosage: 20 MG, DAILY (1/D)
     Route: 048
     Dates: start: 20080715, end: 20080801
  6. LASIX [Concomitant]
     Dosage: 20 MG, DAILY (1/D)
     Route: 048
     Dates: start: 20080807
  7. SALOBEL [Concomitant]
     Dosage: 100 MG, DAILY (1/D)
     Route: 048
     Dates: start: 20080715, end: 20080801
  8. CARDENALIN [Concomitant]
     Dosage: 3 MG, DAILY (1/D)
     Route: 048
     Dates: start: 20080715, end: 20080801
  9. LIPITOR [Concomitant]
     Dosage: 10 MG, DAILY (1/D)
     Route: 048
     Dates: start: 20080715, end: 20080801
  10. LIPITOR [Concomitant]
     Dosage: 10 MG, DAILY (1/D)
     Route: 048
     Dates: start: 20080805
  11. GANATON [Concomitant]
     Dosage: 50 MG, 3/D
     Route: 048
     Dates: start: 20080715, end: 20080801
  12. NORVASC [Concomitant]
     Dosage: 10 MG, DAILY (1/D)
     Route: 048
     Dates: start: 20080715, end: 20080801
  13. NOVORAPID [Concomitant]
     Route: 058
     Dates: start: 20080715
  14. LANTUS [Concomitant]
     Route: 058
     Dates: start: 20080718
  15. RABEPRAZOLE SODIUM [Concomitant]
     Dosage: 10 MG, DAILY (1/D)
     Route: 048
     Dates: start: 20080725, end: 20080729
  16. RABEPRAZOLE SODIUM [Concomitant]
     Dosage: 10 MG, DAILY (1/D)
     Route: 048
     Dates: start: 20080813
  17. RINDERON #1 [Concomitant]
     Dosage: 8 MG, DAILY (1/D)
     Route: 048
     Dates: start: 20080725, end: 20080725
  18. NASEA [Concomitant]
     Dosage: 0.3 MG, UNK
     Route: 042
     Dates: start: 20080725, end: 20080725

REACTIONS (3)
  - CARDIAC FAILURE [None]
  - CORONARY ARTERY STENOSIS [None]
  - RENAL FAILURE [None]
